FAERS Safety Report 8196567-0 (Version None)
Quarter: 2012Q1

REPORT INFORMATION
  Report Type: 
  Country: None (occurrence: None)
  Receive Date: 20120309
  Receipt Date: 20120229
  Transmission Date: 20120608
  Serious: Yes (Other)
  Sender: FDA-Public Use
  Company Number: US-JNJFOC-20120301764

PATIENT
  Sex: Female

DRUGS (5)
  1. REMICADE [Suspect]
     Indication: CROHN'S DISEASE
     Route: 042
     Dates: start: 20100501
  2. REMICADE [Suspect]
     Route: 042
     Dates: start: 20111117
  3. REMICADE [Suspect]
     Route: 042
     Dates: start: 20120217
  4. MERCAPTOPURINE [Suspect]
     Indication: PRODUCT USED FOR UNKNOWN INDICATION
     Route: 065
     Dates: start: 20100101
  5. STEROIDS NOS [Concomitant]
     Indication: PREMEDICATION
     Route: 065

REACTIONS (2)
  - PANCREATITIS [None]
  - PAIN IN JAW [None]
